FAERS Safety Report 13212494 (Version 1)
Quarter: 2017Q1

REPORT INFORMATION
  Report Type: Spontaneous
  Country: US (occurrence: US)
  Receive Date: 20170209
  Receipt Date: 20170209
  Transmission Date: 20170428
  Serious: No
  Sender: FDA-Public Use
  Company Number: US-ALLERGAN-1654083US

PATIENT
  Age: 45 Year
  Sex: Female
  Weight: 63.49 kg

DRUGS (11)
  1. PROGESTERONE. [Concomitant]
     Active Substance: PROGESTERONE
     Indication: HORMONE REPLACEMENT THERAPY
     Dosage: UNK
  2. BOTOX COSMETIC [Suspect]
     Active Substance: ONABOTULINUMTOXINA
     Indication: SKIN WRINKLING
     Dosage: 35 UNITS, SINGLE
     Route: 030
     Dates: start: 20151210, end: 20151210
  3. BOTOX COSMETIC [Suspect]
     Active Substance: ONABOTULINUMTOXINA
     Indication: SKIN WRINKLING
  4. TESTOSTERONE. [Concomitant]
     Active Substance: TESTOSTERONE
     Indication: HORMONE REPLACEMENT THERAPY
     Dosage: UNK
  5. VIVELLE-DOT [Concomitant]
     Active Substance: ESTRADIOL
     Indication: HORMONE REPLACEMENT THERAPY
     Dosage: UNK
  6. BOTOX COSMETIC [Suspect]
     Active Substance: ONABOTULINUMTOXINA
     Indication: SKIN WRINKLING
     Dosage: 4 UNITS, SINGLE
     Route: 030
     Dates: start: 20151210, end: 20151210
  7. BOTOX COSMETIC [Suspect]
     Active Substance: ONABOTULINUMTOXINA
     Indication: SKIN WRINKLING
     Dosage: 10 UNITS, SINGLE
     Route: 030
     Dates: start: 20151210, end: 20151210
  8. BOTOX COSMETIC [Suspect]
     Active Substance: ONABOTULINUMTOXINA
     Indication: SKIN WRINKLING
     Dosage: 30 UNITS, SINGLE
     Route: 030
     Dates: start: 20151210, end: 20151210
  9. BOTOX COSMETIC [Suspect]
     Active Substance: ONABOTULINUMTOXINA
     Indication: FACE LIFT
     Dosage: 6 UNITS, SINGLE
     Route: 030
     Dates: start: 20151210, end: 20151210
  10. BOTOX COSMETIC [Suspect]
     Active Substance: ONABOTULINUMTOXINA
     Indication: SKIN WRINKLING
     Dosage: 20 UNITS, SINGLE
     Route: 030
     Dates: start: 20151210, end: 20151210
  11. BOTOX COSMETIC [Suspect]
     Active Substance: ONABOTULINUMTOXINA
     Indication: SKIN WRINKLING
     Dosage: 10 UNITS, SINGLE
     Route: 030
     Dates: start: 20151210, end: 20151210

REACTIONS (2)
  - Drug ineffective [Unknown]
  - Off label use [Unknown]

NARRATIVE: CASE EVENT DATE: 20151210
